FAERS Safety Report 7802233-0 (Version None)
Quarter: 2011Q4

REPORT INFORMATION
  Report Type: 
  Country: None (occurrence: None)
  Receive Date: 20111007
  Receipt Date: 20110929
  Transmission Date: 20120403
  Serious: Yes (Death)
  Sender: FDA-Public Use
  Company Number: US-SANOFI-AVENTIS-2011SA064226

PATIENT
  Sex: Male

DRUGS (1)
  1. PLAVIX [Suspect]
     Route: 065
     Dates: start: 20030101, end: 20100918

REACTIONS (6)
  - GASTRIC ULCER [None]
  - MULTIPLE INJURIES [None]
  - QUALITY OF LIFE DECREASED [None]
  - GASTRITIS [None]
  - EMOTIONAL DISTRESS [None]
  - PAIN [None]
